FAERS Safety Report 24593282 (Version 4)
Quarter: 2025Q4

REPORT INFORMATION
  Report Type: Spontaneous
  Country: RU (occurrence: RU)
  Receive Date: 20241108
  Receipt Date: 20251217
  Transmission Date: 20260118
  Serious: Yes (Other)
  Sender: MIRUM PHARMACEUTICALS
  Company Number: RU-MIRUM PHARMACEUTICALS INTERNATIONAL B.V.-RU-MIR-24-00975

PATIENT

DRUGS (5)
  1. LIVMARLI [Suspect]
     Active Substance: MARALIXIBAT CHLORIDE
     Indication: Alagille syndrome
     Dosage: 0.6 MILLIGRAM, QD
     Route: 048
     Dates: start: 202506
  2. LIVMARLI [Suspect]
     Active Substance: MARALIXIBAT CHLORIDE
     Dosage: 0.6 MILLIGRAM, QD
     Route: 048
     Dates: start: 202405, end: 20241024
  3. LIVMARLI [Suspect]
     Active Substance: MARALIXIBAT CHLORIDE
     Dosage: 0.6 MILLIGRAM, QD
     Route: 065
     Dates: start: 20241029
  4. DIETARY SUPPLEMENT\VITAMINS [Suspect]
     Active Substance: DIETARY SUPPLEMENT\VITAMINS
     Indication: Enteral nutrition
     Dosage: UNK, UNK
     Route: 065
  5. DIETARY SUPPLEMENT\VITAMINS [Suspect]
     Active Substance: DIETARY SUPPLEMENT\VITAMINS
     Dosage: 200 MILLIGRAM, QD (DECREASED DOSE)
     Route: 065

REACTIONS (6)
  - Vitamin E deficiency [Recovered/Resolved]
  - Haematochezia [Recovered/Resolved]
  - Haemorrhoids [Unknown]
  - Constipation [Unknown]
  - Anaemia [Recovered/Resolved]
  - Faecal occult blood positive [Recovered/Resolved]

NARRATIVE: CASE EVENT DATE: 20240101
